FAERS Safety Report 10723847 (Version 5)
Quarter: 2015Q2

REPORT INFORMATION
  Report Type: Spontaneous
  Country: US (occurrence: US)
  Receive Date: 20150120
  Receipt Date: 20150427
  Transmission Date: 20150821
  Serious: Yes (Life-Threatening, Hospitalization)
  Sender: FDA-Public Use
  Company Number: US-ACTELION-A-US2015-111235

PATIENT
  Age: 68 Year
  Sex: Female

DRUGS (4)
  1. OPSUMIT [Suspect]
     Active Substance: MACITENTAN
     Indication: PULMONARY HYPERTENSION
     Dosage: 10 MG, QD
     Route: 048
     Dates: start: 20141204
  2. RIOCIGUAT [Concomitant]
     Active Substance: RIOCIGUAT
     Indication: PULMONARY HYPERTENSION
     Dosage: 2.0 MG, TID
     Dates: start: 20140425, end: 20150105
  3. ELIQUIS [Concomitant]
     Active Substance: APIXABAN
     Indication: PULMONARY HYPERTENSION
     Dosage: 2.5 MG, BID
     Dates: start: 20140425, end: 20150105
  4. COUMADIN [Concomitant]
     Active Substance: WARFARIN SODIUM

REACTIONS (2)
  - Pneumonia [Recovered/Resolved]
  - Haemoptysis [Recovering/Resolving]

NARRATIVE: CASE EVENT DATE: 20150105
